FAERS Safety Report 10074682 (Version 1)
Quarter: 2014Q2

REPORT INFORMATION
  Report Type: Report from Study
  Country: FR (occurrence: FR)
  Receive Date: 20140414
  Receipt Date: 20140414
  Transmission Date: 20141212
  Serious: Yes (Hospitalization)
  Sender: FDA-Public Use
  Company Number: FR-ROCHE-1378444

PATIENT
  Sex: Female

DRUGS (6)
  1. RITUXIMAB [Suspect]
     Indication: RHEUMATOID ARTHRITIS
     Route: 041
     Dates: start: 20060623
  2. RITUXIMAB [Suspect]
     Route: 041
     Dates: start: 20070707
  3. RITUXIMAB [Suspect]
     Route: 041
     Dates: start: 20070907
  4. RITUXIMAB [Suspect]
     Route: 041
     Dates: start: 20080924
  5. RITUXIMAB [Suspect]
     Route: 041
     Dates: start: 20090910
  6. CORTANCYL [Concomitant]
     Route: 065

REACTIONS (16)
  - Hepatocellular carcinoma [Not Recovered/Not Resolved]
  - Infection [Unknown]
  - Nausea [Recovered/Resolved]
  - Abdominal pain [Recovered/Resolved]
  - Diarrhoea [Recovered/Resolved]
  - Conjunctivitis bacterial [Recovered/Resolved]
  - Dry eye [Recovered/Resolved]
  - Pruritus generalised [Recovered/Resolved]
  - Balance disorder [Recovered/Resolved]
  - Tinnitus [Recovered/Resolved]
  - Lung infection [Recovered/Resolved]
  - Fall [Recovered/Resolved]
  - Gamma-glutamyltransferase increased [Unknown]
  - Humerus fracture [Recovered/Resolved]
  - Dry skin [Recovered/Resolved]
  - Liver function test abnormal [Unknown]
